FAERS Safety Report 10193867 (Version 1)
Quarter: 2014Q2

REPORT INFORMATION
  Report Type: Spontaneous
  Country: US (occurrence: US)
  Receive Date: 20140524
  Receipt Date: 20140524
  Transmission Date: 20141212
  Serious: No
  Sender: FDA-Public Use
  Company Number: US-SANOFI-AVENTIS-2013SA071534

PATIENT
  Age: 72 Year
  Sex: Female

DRUGS (3)
  1. SOLOSTAR [Suspect]
  2. LANTUS SOLOSTAR [Suspect]
     Dosage: DOSE:50 UNIT(S)
     Route: 051
  3. CORTISONE [Concomitant]

REACTIONS (2)
  - Malaise [Unknown]
  - Blood glucose abnormal [Unknown]
